FAERS Safety Report 24578830 (Version 1)
Quarter: 2024Q4

REPORT INFORMATION
  Report Type: Spontaneous
  Country: US (occurrence: US)
  Receive Date: 20241105
  Receipt Date: 20241105
  Transmission Date: 20250114
  Serious: Yes (Other)
  Sender: CHIESI
  Company Number: US-CHIESI-2024CHF07023

PATIENT
  Age: 54 Year
  Sex: Male
  Weight: 116.5 kg

DRUGS (2)
  1. CLEVIPREX [Suspect]
     Active Substance: CLEVIDIPINE
     Indication: Product used for unknown indication
     Dosage: UNK
     Route: 065
     Dates: start: 202410, end: 202410
  2. NITROGLYCERIN [Concomitant]
     Active Substance: NITROGLYCERIN
     Indication: Product used for unknown indication
     Dosage: UNK

REACTIONS (1)
  - Hypoxia [Recovered/Resolved]

NARRATIVE: CASE EVENT DATE: 20241001
